FAERS Safety Report 6565970-4 (Version None)
Quarter: 2010Q1

REPORT INFORMATION
  Report Type: 
  Country: None (occurrence: None)
  Receive Date: 20100129
  Receipt Date: 20100129
  Transmission Date: 20100710
  Serious: Yes (Life-Threatening)
  Sender: FDA-Public Use
  Company Number: None

PATIENT
  Age: 74 Year
  Sex: Male
  Weight: 92 kg

DRUGS (2)
  1. DILTIAZEM HCL [Suspect]
     Indication: ATRIAL FIBRILLATION
     Dosage: 10MG PER HOUR IV
     Route: 042
     Dates: start: 20100126, end: 20100126
  2. METOPROLOL [Suspect]
     Dosage: 25 MG BID PO
     Route: 048
     Dates: start: 20091023

REACTIONS (4)
  - ATRIAL FIBRILLATION [None]
  - ATRIOVENTRICULAR BLOCK [None]
  - HYPOTENSION [None]
  - UNRESPONSIVE TO STIMULI [None]
